FAERS Safety Report 5160834-5 (Version None)
Quarter: 2006Q4

REPORT INFORMATION
  Report Type: 
  Country: None (occurrence: None)
  Receive Date: 20061121
  Receipt Date: 20061108
  Transmission Date: 20070319
  Serious: Yes (Death)
  Sender: FDA-Public Use
  Company Number: 229601

PATIENT
  Age: 70 Year
  Sex: Female

DRUGS (1)
  1. ACTIVACIN (ALTEPLASE) PWDR + SOLVENT, INFUSION SOLN [Suspect]
     Indication: CEREBRAL INFARCTION
     Dosage: 27 MG, SINGLE, INTRAVENOUS
     Route: 042
     Dates: start: 20060905, end: 20060905

REACTIONS (4)
  - AORTIC ANEURYSM RUPTURE [None]
  - BLOOD PRESSURE DECREASED [None]
  - CARDIO-RESPIRATORY ARREST [None]
  - DEPRESSED LEVEL OF CONSCIOUSNESS [None]
